FAERS Safety Report 5334527-5 (Version None)
Quarter: 2007Q2

REPORT INFORMATION
  Report Type: 
  Country: None (occurrence: None)
  Receive Date: 20070308
  Receipt Date: 20061108
  Transmission Date: 20071010
  Serious: No
  Sender: FDA-Public Use
  Company Number: 2006-BP-13049BP

PATIENT
  Sex: Female

DRUGS (6)
  1. SPIRIVA [Suspect]
     Indication: CHRONIC OBSTRUCTIVE PULMONARY DISEASE
     Dosage: 18 MCG (18 MCG, 1 IN 1 D), IH
     Route: 055
  2. PREMARIN [Concomitant]
  3. LIBRIUM-GENERIC (CHLORDIAZEPOXIDE) [Concomitant]
  4. VITAMIN E [Concomitant]
  5. PREVACID [Concomitant]
  6. METOPROLOL TARTRATE [Concomitant]

REACTIONS (1)
  - WEIGHT INCREASED [None]
